FAERS Safety Report 5793112-1 (Version None)
Quarter: 2008Q2

REPORT INFORMATION
  Report Type: 
  Country: None (occurrence: None)
  Receive Date: 20080626
  Receipt Date: 20080626
  Transmission Date: 20081010
  Serious: No
  Sender: FDA-Public Use
  Company Number: None

PATIENT
  Age: 74 Year
  Sex: Male

DRUGS (3)
  1. MIRTAZAPINE [Suspect]
     Indication: ANXIETY
     Dosage: 15 MG AT BEDTIME PO
     Route: 048
     Dates: start: 20080128, end: 20080519
  2. MIRTAZAPINE [Suspect]
     Indication: DEPRESSION
     Dosage: 15 MG AT BEDTIME PO
     Route: 048
     Dates: start: 20080128, end: 20080519
  3. MIRTAZAPINE [Suspect]
     Indication: SOMATOFORM DISORDER
     Dosage: 15 MG AT BEDTIME PO
     Route: 048
     Dates: start: 20080128, end: 20080519

REACTIONS (2)
  - AKATHISIA [None]
  - RESTLESS LEGS SYNDROME [None]
